FAERS Safety Report 6184291-5 (Version None)
Quarter: 2009Q2

REPORT INFORMATION
  Report Type: 
  Country: None (occurrence: None)
  Receive Date: 20090508
  Receipt Date: 20090427
  Transmission Date: 20091009
  Serious: Yes (Other)
  Sender: FDA-Public Use
  Company Number: US-AVENTIS-200913051US

PATIENT
  Sex: Female

DRUGS (6)
  1. LANTUS [Suspect]
     Indication: TYPE 2 DIABETES MELLITUS
     Route: 058
     Dates: start: 20060201
  2. OPTICLIK (INSULIN INJECTION PEN) [Suspect]
     Indication: TYPE 2 DIABETES MELLITUS
     Dates: start: 20060201
  3. ACTOS [Concomitant]
     Dosage: DOSE: UNK
  4. GLYCEROL 2.6% [Concomitant]
     Dosage: DOSE: UNK
  5. METFORMIN HCL [Concomitant]
     Dosage: DOSE: UNK
  6. GLIPIZIDE [Concomitant]
     Dosage: DOSE: UNK

REACTIONS (2)
  - BLOOD GLUCOSE INCREASED [None]
  - FOOT FRACTURE [None]
